FAERS Safety Report 10398831 (Version 2)
Quarter: 2014Q3

REPORT INFORMATION
  Report Type: Other
  Country: US (occurrence: US)
  Receive Date: 20140821
  Receipt Date: 20140821
  Transmission Date: 20150326
  Serious: No
  Sender: FDA-Public Use
  Company Number: US-MYLAN-2014S1012645

PATIENT
  Age: 8 Decade
  Sex: Male
  Weight: 106.14 kg

DRUGS (4)
  1. STATIN /00848101/ [Concomitant]
     Dosage: UNK
  2. OLANZAPINE TABLETS, USP [Suspect]
     Active Substance: OLANZAPINE
     Indication: SCHIZOPHRENIA
     Dosage: 10 MG,HS
     Route: 048
     Dates: start: 201404, end: 201404
  3. OLANZAPINE TABLETS, USP [Suspect]
     Active Substance: OLANZAPINE
     Dosage: 5 MG,HS
     Route: 048
     Dates: start: 201404, end: 201404
  4. OLANZAPINE TABLETS USP [Suspect]
     Active Substance: OLANZAPINE
     Indication: SCHIZOPHRENIA
     Dosage: 10 MG,HS
     Route: 048
     Dates: start: 201404, end: 201405

REACTIONS (8)
  - Feeling abnormal [Recovered/Resolved]
  - Depressed mood [Recovered/Resolved]
  - Unevaluable event [Recovered/Resolved]
  - Pain [Recovered/Resolved]
  - Fatigue [Recovered/Resolved]
  - Anxiety [Recovered/Resolved]
  - Asthenia [Recovered/Resolved]
  - Drug intolerance [Recovered/Resolved]

NARRATIVE: CASE EVENT DATE: 201404
